FAERS Safety Report 9887919 (Version 2)
Quarter: 2014Q1

REPORT INFORMATION
  Report Type: Spontaneous
  Country: US (occurrence: US)
  Receive Date: 20140211
  Receipt Date: 20140213
  Transmission Date: 20141002
  Serious: Yes (Death, Hospitalization)
  Sender: FDA-Public Use
  Company Number: US-ASTELLAS-2014US001223

PATIENT
  Sex: Female

DRUGS (1)
  1. PROGRAF [Suspect]
     Indication: LUNG TRANSPLANT
     Dosage: 3 MG IN AM, 2 MG IN PM
     Route: 048
     Dates: start: 20080310, end: 20140203

REACTIONS (3)
  - Off label use [Unknown]
  - Renal failure [Fatal]
  - Hospitalisation [Unknown]
